FAERS Safety Report 10956187 (Version 1)
Quarter: 2015Q1

REPORT INFORMATION
  Report Type: Spontaneous
  Country: US (occurrence: None)
  Receive Date: 20150226
  Receipt Date: 20150226
  Transmission Date: 20150721
  Serious: Yes (Other)
  Sender: FDA-Public Use
  Company Number: TPA2012A04725

PATIENT
  Age: 73 Year
  Sex: Male

DRUGS (5)
  1. TRADJENTA (LINAGLIPTIN) [Concomitant]
  2. ACTOPLUS MET [Suspect]
     Active Substance: METFORMIN HYDROCHLORIDE\PIOGLITAZONE HYDROCHLORIDE
     Indication: TYPE 2 DIABETES MELLITUS
     Dates: start: 200911
  3. ACTOS [Suspect]
     Active Substance: PIOGLITAZONE HYDROCHLORIDE
     Indication: TYPE 2 DIABETES MELLITUS
     Dates: start: 201003, end: 201103
  4. METFORMIN [Concomitant]
     Active Substance: METFORMIN HYDROCHLORIDE
  5. GLUCOTROL [Concomitant]
     Active Substance: GLIPIZIDE

REACTIONS (1)
  - Bladder cancer [None]

NARRATIVE: CASE EVENT DATE: 2009
